FAERS Safety Report 22140499 (Version 1)
Quarter: 2023Q1

REPORT INFORMATION
  Report Type: Spontaneous
  Country: NL (occurrence: NL)
  Receive Date: 20230327
  Receipt Date: 20230327
  Transmission Date: 20230418
  Serious: Yes (Life-Threatening)
  Sender: FDA-Public Use
  Company Number: None

PATIENT
  Sex: Male
  Weight: 100 kg

DRUGS (2)
  1. LACOSAMIDE [Suspect]
     Active Substance: LACOSAMIDE
     Indication: Epilepsy
     Dosage: 2D 100 MG, STRENGTH:100 MG
     Dates: start: 20220325, end: 20221110
  2. OXCARBAZEPINE [Suspect]
     Active Substance: OXCARBAZEPINE
     Indication: Epilepsy
     Dosage: 600-600-900 MG, STRENGTH: 300 MG
     Dates: start: 20210501

REACTIONS (3)
  - Abnormal behaviour [Recovered/Resolved]
  - Depressed mood [Recovered/Resolved]
  - Impulsive behaviour [Recovered/Resolved]
